FAERS Safety Report 9038116 (Version 1)
Quarter: 2013Q1

REPORT INFORMATION
  Report Type: Other
  Country: US (occurrence: US)
  Receive Date: 20130129
  Receipt Date: 20130129
  Transmission Date: 20140127
  Serious: Yes (Death)
  Sender: FDA-Public Use
  Company Number: US-FRI-1000042148

PATIENT
  Age: 18 Year
  Sex: Male

DRUGS (4)
  1. ESCITALOPRAM [Suspect]
  2. CHLORPROMAZINE [Suspect]
  3. QUETIAPINE [Suspect]
  4. VALPROIC ACID [Suspect]

REACTIONS (1)
  - Death [Fatal]
